FAERS Safety Report 15591709 (Version 2)
Quarter: 2018Q4

REPORT INFORMATION
  Report Type: Spontaneous
  Country: DK (occurrence: DK)
  Receive Date: 20181107
  Receipt Date: 20181112
  Transmission Date: 20190205
  Serious: Yes (Hospitalization)
  Sender: FDA-Public Use
  Company Number: DK-PFIZER INC-2018453614

PATIENT
  Age: 47 Year
  Sex: Male

DRUGS (1)
  1. PANTOLOC [Suspect]
     Active Substance: PANTOPRAZOLE SODIUM
     Indication: HICCUPS
     Dosage: UNK
     Route: 065

REACTIONS (10)
  - Rash pruritic [Recovered/Resolved]
  - Infection [Recovered/Resolved]
  - Haemorrhage subcutaneous [Recovered/Resolved]
  - Pain in extremity [Not Recovered/Not Resolved]
  - Rash [Recovered/Resolved]
  - Purpura [Recovered/Resolved]
  - Ecchymosis [Recovered/Resolved]
  - Hypersensitivity vasculitis [Recovered/Resolved]
  - Oedema peripheral [Recovered/Resolved]
  - Hypersensitivity [Recovered/Resolved]

NARRATIVE: CASE EVENT DATE: 201606
